FAERS Safety Report 25796274 (Version 1)
Quarter: 2025Q3

REPORT INFORMATION
  Report Type: Spontaneous
  Country: US (occurrence: US)
  Receive Date: 20250912
  Receipt Date: 20250912
  Transmission Date: 20251021
  Serious: No
  Sender: SPECTRUM
  Company Number: US-SPECTRUM PHARMACEUTICALS, INC.-US-2025AST000192

PATIENT
  Sex: Female

DRUGS (1)
  1. ROLVEDON [Suspect]
     Active Substance: EFLAPEGRASTIM-XNST
     Indication: Product used for unknown indication
     Route: 058

REACTIONS (3)
  - Accidental exposure to product [Unknown]
  - Incorrect dose administered [Unknown]
  - Syringe issue [Unknown]
